FAERS Safety Report 6202800-4 (Version None)
Quarter: 2009Q2

REPORT INFORMATION
  Report Type: 
  Country: None (occurrence: None)
  Receive Date: 20090526
  Receipt Date: 20090511
  Transmission Date: 20091009
  Serious: Yes (Death)
  Sender: FDA-Public Use
  Company Number: FR-PFIZER INC-2007045015

PATIENT
  Age: 45 Year

DRUGS (18)
  1. VORICONAZOLE [Suspect]
     Indication: PROPHYLAXIS
     Dosage: 420 MG, 2X/DAY
     Route: 042
     Dates: start: 20070102, end: 20070102
  2. VORICONAZOLE [Suspect]
     Dosage: 280 MG, 2X/DAY
     Route: 042
     Dates: start: 20070103, end: 20070103
  3. VORICONAZOLE [Suspect]
     Dosage: 200 MG, 2X/DAY
     Route: 048
     Dates: start: 20070104, end: 20070113
  4. VORICONAZOLE [Suspect]
     Dosage: 200 MG, 1X/DAY
     Route: 048
     Dates: start: 20070114, end: 20070114
  5. VORICONAZOLE [Suspect]
     Dosage: 200 MG, 2X/DAY
     Route: 048
     Dates: start: 20070115, end: 20070122
  6. VORICONAZOLE [Suspect]
     Dosage: 200 MG, 1X/DAY
     Route: 048
     Dates: start: 20070123, end: 20070123
  7. VORICONAZOLE [Suspect]
     Dosage: 200 MG, 2X/DAY
     Route: 048
     Dates: start: 20070124, end: 20070223
  8. COLIMYCINE [Concomitant]
     Route: 048
     Dates: start: 20061222, end: 20070323
  9. NEOMYCIN SULFATE [Concomitant]
     Route: 048
     Dates: start: 20061222, end: 20070323
  10. VANCOMYCIN HYDROCHLORIDE [Concomitant]
     Route: 048
     Dates: start: 20061222, end: 20070323
  11. URSODIOL [Concomitant]
     Route: 048
     Dates: start: 20061222
  12. LEVOTHYROXINE SODIUM [Concomitant]
     Route: 048
     Dates: start: 20010101
  13. BROMAZEPAM [Concomitant]
     Route: 048
     Dates: start: 20061222, end: 20070330
  14. ACYCLOVIR SODIUM [Concomitant]
     Route: 042
     Dates: start: 20061224
  15. ESOMEPRAZOLE MAGNESIUM [Concomitant]
     Route: 042
     Dates: start: 20070123
  16. FOLINIC ACID [Concomitant]
     Route: 048
     Dates: start: 20061230, end: 20070319
  17. DRUG, UNSPECIFIED [Concomitant]
     Route: 042
     Dates: start: 20070402
  18. DEFIBROTIDE [Concomitant]
     Route: 042
     Dates: start: 20070330

REACTIONS (1)
  - GRAFT COMPLICATION [None]
